FAERS Safety Report 8821922 (Version 1)
Quarter: 2012Q4

REPORT INFORMATION
  Report Type: 
  Country: US (occurrence: US)
  Receive Date: 20121003
  Receipt Date: 20121003
  Transmission Date: 20130627
  Serious: Yes (Hospitalization, Other)
  Sender: FDA-Public Use
  Company Number: US-009507513-1203USA01694

PATIENT

DRUGS (6)
  1. FOSAMAX [Suspect]
     Indication: OSTEOPOROSIS
     Dosage: 70 mg, UNK
     Route: 048
     Dates: start: 200201, end: 200710
  2. FOSAMAX PLUS D [Suspect]
     Indication: OSTEOPOROSIS
     Dosage: 70 mg, UNK
     Route: 048
     Dates: start: 20071001, end: 200806
  3. ALENDRONATE SODIUM [Suspect]
     Indication: OSTEOPOROSIS
     Dosage: 70 mg, UNK
     Route: 048
     Dates: start: 20080613, end: 20090409
  4. WARFARIN [Concomitant]
     Indication: THROMBOSIS
     Dosage: UNK
     Dates: start: 1997
  5. VITAMINS (UNSPECIFIED) [Concomitant]
     Indication: PRODUCT USED FOR UNKNOWN INDICATION
     Dosage: UNK
     Dates: start: 1997
  6. CHOLECALCIFEROL [Concomitant]
     Indication: PRODUCT USED FOR UNKNOWN INDICATION
     Dosage: UNK
     Dates: start: 1997

REACTIONS (7)
  - Femur fracture [Unknown]
  - Fall [Unknown]
  - Impaired healing [Unknown]
  - Intramedullary rod insertion [Unknown]
  - Hypertension [Unknown]
  - Gastrooesophageal reflux disease [Unknown]
  - Medical device removal [Unknown]
